FAERS Safety Report 24247475 (Version 3)
Quarter: 2024Q3

REPORT INFORMATION
  Report Type: Spontaneous
  Country: DO (occurrence: DO)
  Receive Date: 20240826
  Receipt Date: 20240913
  Transmission Date: 20241017
  Serious: Yes (Other)
  Sender: ROCHE
  Company Number: DO-ROCHE-10000060720

PATIENT
  Age: 67 Year
  Sex: Female

DRUGS (3)
  1. PERJETA [Suspect]
     Active Substance: PERTUZUMAB
     Indication: Lung neoplasm malignant
     Dosage: DOSE AND FREQUENCY WERE NOT REPORTED
     Route: 065
     Dates: end: 202405
  2. PERJETA [Suspect]
     Active Substance: PERTUZUMAB
     Indication: Salivary gland cancer
     Dosage: DOSE AND FREQUENCY WERE NOT REPORTED
     Route: 065
     Dates: start: 2024, end: 202406
  3. HERCEPTIN [Suspect]
     Active Substance: TRASTUZUMAB
     Indication: Product used for unknown indication
     Dosage: DOSE AND FREQUENCY WERE NOT REPORTED
     Route: 065

REACTIONS (6)
  - Malignant neoplasm progression [Not Recovered/Not Resolved]
  - Off label use [Unknown]
  - Speech disorder [Not Recovered/Not Resolved]
  - General physical health deterioration [Not Recovered/Not Resolved]
  - Malaise [Not Recovered/Not Resolved]
  - Oxygen therapy [Not Recovered/Not Resolved]

NARRATIVE: CASE EVENT DATE: 20240101
